FAERS Safety Report 9847896 (Version 2)
Quarter: 2014Q2

REPORT INFORMATION
  Report Type: Spontaneous
  Country: US (occurrence: None)
  Receive Date: 20130724
  Receipt Date: 20130724
  Transmission Date: 20141212
  Serious: Yes (Other)
  Sender: FDA-Public Use
  Company Number: PHEH2013US002410

PATIENT
  Age: 87 Year
  Sex: Female

DRUGS (4)
  1. AFINITOR (RAD) UNKNOWN [Suspect]
     Indication: BREAST CANCER STAGE IV
     Route: 048
  2. ARICEPT (DONEPEZIL HYDROCHLORIDE) [Concomitant]
  3. AROMASIN (EXEMESTANE) [Concomitant]
  4. ZOMETA (ZOLEDRONIC ACID) [Concomitant]

REACTIONS (6)
  - Neoplasm [None]
  - Malignant neoplasm progression [None]
  - Metastases to spine [None]
  - Metastases to bone [None]
  - Metastases to adrenals [None]
  - Breast cancer [None]
